FAERS Safety Report 5504759-1 (Version None)
Quarter: 2007Q4

REPORT INFORMATION
  Report Type: 
  Country: None (occurrence: None)
  Receive Date: 20071102
  Receipt Date: 20071025
  Transmission Date: 20080405
  Serious: Yes (Hospitalization)
  Sender: FDA-Public Use
  Company Number: JP-ASTRAZENECA-2007AP06619

PATIENT
  Age: 59 Year
  Sex: Female

DRUGS (4)
  1. CRESTOR [Suspect]
     Indication: LIPIDS ABNORMAL
     Dosage: DOSE UNKNOWN
     Route: 048
     Dates: start: 20070911, end: 20071015
  2. FAMOTIDINE [Concomitant]
     Dosage: DOSE UNKNOWN
     Route: 048
  3. LUDIOMIL [Concomitant]
     Dosage: DOSE UNKNOWN
     Route: 048
  4. CYTOTEC [Concomitant]
     Dosage: DOSE UNKNOWN
     Route: 048

REACTIONS (1)
  - LIVER DISORDER [None]
